FAERS Safety Report 7932952-7 (Version None)
Quarter: 2011Q4

REPORT INFORMATION
  Report Type: 
  Country: None (occurrence: None)
  Receive Date: 20111122
  Receipt Date: 20111115
  Transmission Date: 20120403
  Serious: No
  Sender: FDA-Public Use
  Company Number: US-PFIZER INC-2011281234

PATIENT
  Sex: Male

DRUGS (3)
  1. ASPIRIN [Concomitant]
     Indication: ANTIPLATELET THERAPY
     Dosage: UNK
  2. PLAVIX [Concomitant]
     Indication: ANTIPLATELET THERAPY
     Dosage: UNK
  3. VIAGRA [Suspect]
     Indication: PERIPHERAL ARTERIAL OCCLUSIVE DISEASE
     Dosage: 50 MG, UNK
     Route: 048
     Dates: start: 20111114

REACTIONS (1)
  - DRUG EFFECT DECREASED [None]
